FAERS Safety Report 10029497 (Version 2)
Quarter: 2014Q2

REPORT INFORMATION
  Report Type: Spontaneous
  Country: US (occurrence: US)
  Receive Date: 20140322
  Receipt Date: 20140408
  Transmission Date: 20141212
  Serious: No
  Sender: FDA-Public Use
  Company Number: US-009507513-1403USA004765

PATIENT
  Sex: Female

DRUGS (2)
  1. ASMANEX TWISTHALER [Suspect]
     Dosage: 220 MICROGRAM, BID, CAP
     Route: 055
     Dates: start: 20140307
  2. ASMANEX TWISTHALER [Suspect]
     Dosage: 220 MICROGRAM, BID, BASE
     Route: 055
     Dates: start: 20140307

REACTIONS (8)
  - Pharyngeal hypoaesthesia [Not Recovered/Not Resolved]
  - Anxiety [Not Recovered/Not Resolved]
  - Dry throat [Not Recovered/Not Resolved]
  - Anxiety [Unknown]
  - Product packaging issue [Unknown]
  - Product quality issue [Unknown]
  - Product lot number issue [Unknown]
  - Incorrect dose administered [Unknown]
